FAERS Safety Report 16507843 (Version 1)
Quarter: 2019Q3

REPORT INFORMATION
  Report Type: Other
  Country: US (occurrence: US)
  Receive Date: 20190702
  Receipt Date: 20190702
  Transmission Date: 20191004
  Serious: Yes (Other)
  Sender: FDA-Public Use
  Company Number: US-FDC LIMITED-2070181

PATIENT
  Age: 24 Year
  Sex: Female

DRUGS (3)
  1. CIPROFLOXACIN. [Suspect]
     Active Substance: CIPROFLOXACIN
     Indication: URINARY TRACT INFECTION
     Route: 048
  2. INSULIN [Concomitant]
     Active Substance: INSULIN NOS
     Route: 065
  3. NEUTRAL PROTAMINE HAGEDORN INSULIN [Concomitant]
     Active Substance: INSULIN HUMAN
     Route: 065

REACTIONS (1)
  - Hepatocellular injury [Recovered/Resolved]
